FAERS Safety Report 6075908-4 (Version None)
Quarter: 2009Q1

REPORT INFORMATION
  Report Type: 
  Country: None (occurrence: None)
  Receive Date: 20090209
  Receipt Date: 20090127
  Transmission Date: 20090719
  Serious: Yes (Hospitalization)
  Sender: FDA-Public Use
  Company Number: 1000003714

PATIENT
  Sex: Male

DRUGS (2)
  1. CAMPRAL [Suspect]
  2. ALCOHOL [Concomitant]

REACTIONS (2)
  - FALL [None]
  - RENAL FAILURE ACUTE [None]
